FAERS Safety Report 4382475-X (Version None)
Quarter: 2004Q2

REPORT INFORMATION
  Report Type: 
  Country: None (occurrence: None)
  Receive Date: 20040617
  Receipt Date: 20040602
  Transmission Date: 20050107
  Serious: No
  Sender: FDA-Public Use
  Company Number: 2004GB01332

PATIENT
  Age: 68 Year
  Sex: Male
  Weight: 70 kg

DRUGS (2)
  1. ESOMEPRAZOLE [Suspect]
     Indication: DYSPEPSIA
     Dates: end: 20021201
  2. ESOMEPRAZOLE [Suspect]
     Indication: DYSPEPSIA
     Dates: start: 20040201, end: 20040201

REACTIONS (1)
  - DRUG ERUPTION [None]
